FAERS Safety Report 9014137 (Version 1)
Quarter: 2013Q1

REPORT INFORMATION
  Report Type: Spontaneous
  Country: DK (occurrence: DK)
  Receive Date: 20130115
  Receipt Date: 20130115
  Transmission Date: 20140127
  Serious: Yes (Congenital Anomaly)
  Sender: FDA-Public Use
  Company Number: DK-ABBOTT-13P-044-1029624-00

PATIENT
  Sex: 0

DRUGS (1)
  1. CLARITHROMYCIN [Suspect]
     Indication: MATERNAL EXPOSURE TIMING UNSPECIFIED
     Route: 064

REACTIONS (3)
  - Limb malformation [Unknown]
  - Foetal exposure during pregnancy [Unknown]
  - Live birth [Unknown]
